FAERS Safety Report 4514877-2 (Version None)
Quarter: 2004Q4

REPORT INFORMATION
  Report Type: 
  Country: None (occurrence: None)
  Receive Date: 20041126
  Receipt Date: 20041117
  Transmission Date: 20050328
  Serious: Yes (Other)
  Sender: FDA-Public Use
  Company Number: 2004-11-0992

PATIENT
  Age: 39 Year
  Sex: Female

DRUGS (1)
  1. CELESTENE (BETAMETHASONE SODIUM PHOSPHOTASE) INJECTABLE SOLUTION  ^LIK [Suspect]
     Indication: SINUS DISORDER
     Dosage: 4 MG
     Dates: start: 20030101, end: 20030101

REACTIONS (1)
  - OSTEONECROSIS [None]
